FAERS Safety Report 8197518-5 (Version None)
Quarter: 2012Q1

REPORT INFORMATION
  Report Type: 
  Country: None (occurrence: None)
  Receive Date: 20120309
  Receipt Date: 20120224
  Transmission Date: 20120608
  Serious: Yes (Hospitalization)
  Sender: FDA-Public Use
  Company Number: JP-ROCHE-1044503

PATIENT
  Sex: Male
  Weight: 49 kg

DRUGS (5)
  1. TAMIFLU [Suspect]
     Indication: INFLUENZA
     Route: 048
     Dates: start: 20120212, end: 20120212
  2. TAMIFLU [Suspect]
     Route: 048
     Dates: start: 20120213, end: 20120215
  3. ENALAPRIL MALEATE [Concomitant]
     Route: 048
     Dates: start: 20120212, end: 20120216
  4. AMOBAN [Concomitant]
     Indication: INSOMNIA
     Route: 048
     Dates: start: 20120212
  5. TAMIFLU [Suspect]
     Route: 048
     Dates: start: 20120216, end: 20120216

REACTIONS (1)
  - BLOOD CREATINE PHOSPHOKINASE INCREASED [None]
